FAERS Safety Report 8767086 (Version 2)
Quarter: 2012Q4

REPORT INFORMATION
  Report Type: 
  Country: GB (occurrence: GB)
  Receive Date: 20120828
  Receipt Date: 20120904
  Transmission Date: 20130627
  Serious: Yes (Death, Other)
  Sender: FDA-Public Use
  Company Number: GB-ELI_LILLY_AND_COMPANY-GB201208007553

PATIENT
  Age: 74 Year
  Sex: Male

DRUGS (3)
  1. ZYPREXA [Suspect]
     Indication: AGITATED DEPRESSION
     Dosage: 2.5 mg, each morning
  2. ZYPREXA [Suspect]
     Dosage: 15 mg, each evening
  3. LITHIUM [Concomitant]

REACTIONS (2)
  - Death [Fatal]
  - Choking [Not Recovered/Not Resolved]
